FAERS Safety Report 9700311 (Version 4)
Quarter: 2014Q1

REPORT INFORMATION
  Report Type: Spontaneous
  Country: JP (occurrence: JP)
  Receive Date: 20131121
  Receipt Date: 20140227
  Transmission Date: 20141002
  Serious: Yes (Hospitalization)
  Sender: FDA-Public Use
  Company Number: JP-JNJFOC-20131110524

PATIENT
  Age: 76 Year
  Sex: Female

DRUGS (6)
  1. TRAMCET [Suspect]
     Indication: PAIN
     Dosage: ONE TABLET A DAY
     Route: 048
     Dates: end: 20130725
  2. TRAMCET [Suspect]
     Indication: PAIN
     Dosage: 2 TABLETS A DAY
     Route: 048
     Dates: start: 20130726, end: 20130829
  3. CYMBALTA [Concomitant]
     Indication: PAIN
     Dosage: ONCE A DAY
     Route: 048
     Dates: end: 20130829
  4. HALCION [Concomitant]
     Indication: INSOMNIA
     Dosage: ONCE A DAY
     Route: 048
     Dates: end: 20130829
  5. MUCODYNE [Concomitant]
     Indication: PRODUCTIVE COUGH
     Dosage: ONCE A DAY
     Route: 048
  6. CLOTIAZEPAM [Concomitant]
     Indication: DEPRESSIVE SYMPTOM
     Dosage: ONCE A DAY
     Route: 048

REACTIONS (2)
  - Liver disorder [Recovering/Resolving]
  - Hepatitis C antibody positive [Unknown]
